FAERS Safety Report 23995754 (Version 1)
Quarter: 2024Q2

REPORT INFORMATION
  Report Type: Spontaneous
  Country: US (occurrence: US)
  Receive Date: 20240620
  Receipt Date: 20240620
  Transmission Date: 20240716
  Serious: Yes (Other)
  Sender: FDA-Public Use
  Company Number: US-PFIZER INC-PV202400080165

PATIENT
  Age: 6 Year
  Sex: Male

DRUGS (3)
  1. METHYLPREDNISOLONE SODIUM SUCCINATE [Suspect]
     Active Substance: METHYLPREDNISOLONE SODIUM SUCCINATE
     Indication: Juvenile idiopathic arthritis
     Dosage: 30 MG/KG, DAILY (PULSE THERAPY)
     Route: 042
     Dates: start: 198605
  2. PREDNISONE [Suspect]
     Active Substance: PREDNISONE
     Indication: Juvenile idiopathic arthritis
     Dosage: 40 MG, DAILY (IN DIVIDED DOSES)
     Route: 048
  3. PREDNISONE [Suspect]
     Active Substance: PREDNISONE
     Dosage: 10 MG, DAILY

REACTIONS (2)
  - Cushing^s syndrome [Unknown]
  - Epidural lipomatosis [Unknown]

NARRATIVE: CASE EVENT DATE: 19860101
